FAERS Safety Report 7324611-9 (Version None)
Quarter: 2011Q1

REPORT INFORMATION
  Report Type: 
  Country: None (occurrence: None)
  Receive Date: 20110218
  Receipt Date: 20110214
  Transmission Date: 20110831
  Serious: Yes (Other)
  Sender: FDA-Public Use
  Company Number: CIP10003198

PATIENT
  Age: 68 Year
  Sex: Female

DRUGS (4)
  1. HORMONES NOS [Concomitant]
  2. COMBINATIONS OF VITAMINS [Concomitant]
  3. ACTONEL [Suspect]
     Dosage: ORAL
     Route: 048
     Dates: start: 20050101
  4. XANAX [Concomitant]

REACTIONS (6)
  - BACTERIAL INFECTION [None]
  - TOOTH FRACTURE [None]
  - PAIN IN JAW [None]
  - TOOTH LOSS [None]
  - OSTEOMYELITIS [None]
  - DEVICE BREAKAGE [None]
